FAERS Safety Report 5866128-4 (Version None)
Quarter: 2008Q3

REPORT INFORMATION
  Report Type: 
  Country: None (occurrence: None)
  Receive Date: 20080829
  Receipt Date: 20080818
  Transmission Date: 20090109
  Serious: Yes (Other)
  Sender: FDA-Public Use
  Company Number: AU-PFIZER INC-2008069723

PATIENT
  Sex: Female

DRUGS (5)
  1. DILANTIN [Suspect]
  2. PENICILLIN G PROCAINE [Suspect]
  3. VANCOMYCIN HYDROCHLORIDE [Suspect]
  4. TEICOPLANIN [Suspect]
  5. MOXIFLOXACIN HCL [Suspect]

REACTIONS (1)
  - STEVENS-JOHNSON SYNDROME [None]
